FAERS Safety Report 12991190 (Version 1)
Quarter: 2016Q4

REPORT INFORMATION
  Report Type: Spontaneous
  Country: US (occurrence: US)
  Receive Date: 20161201
  Receipt Date: 20161201
  Transmission Date: 20170207
  Serious: Yes (Other)
  Sender: FDA-Public Use
  Company Number: US-PURDUE-USA-2016-0134439

PATIENT
  Age: 60 Year
  Sex: Female

DRUGS (1)
  1. OXYCODONE/ ACETAMINOPHEN TABLETS [Suspect]
     Active Substance: ACETAMINOPHEN\OXYCODONE HYDROCHLORIDE
     Indication: PAIN
     Dosage: (7.5/325 MG), TID
     Route: 048
     Dates: start: 20161022

REACTIONS (7)
  - Sensation of foreign body [Not Recovered/Not Resolved]
  - Headache [Not Recovered/Not Resolved]
  - Burning sensation [Not Recovered/Not Resolved]
  - Feeling abnormal [Not Recovered/Not Resolved]
  - Dysgeusia [Unknown]
  - Pharyngeal oedema [Not Recovered/Not Resolved]
  - Throat irritation [Not Recovered/Not Resolved]

NARRATIVE: CASE EVENT DATE: 20161022
